FAERS Safety Report 6045439-6 (Version None)
Quarter: 2009Q1

REPORT INFORMATION
  Report Type: 
  Country: None (occurrence: None)
  Receive Date: 20090121
  Receipt Date: 20090109
  Transmission Date: 20090719
  Serious: Yes (Other)
  Sender: FDA-Public Use
  Company Number: GB-PFIZER INC-2008157069

PATIENT

DRUGS (1)
  1. DALACIN [Suspect]
     Dosage: 150 MG, 4X/DAY
     Route: 048
     Dates: end: 20081214

REACTIONS (2)
  - ANAEMIA [None]
  - PALLOR [None]
